FAERS Safety Report 10048356 (Version 1)
Quarter: 2014Q1

REPORT INFORMATION
  Report Type: Spontaneous
  Country: GB (occurrence: GB)
  Receive Date: 20140331
  Receipt Date: 20140331
  Transmission Date: 20141002
  Serious: Yes (Hospitalization)
  Sender: FDA-Public Use
  Company Number: GB-GLAXOSMITHKLINE-B0978894A

PATIENT
  Age: 39 Year
  Sex: Male

DRUGS (6)
  1. LAMOTRIGINE [Suspect]
     Indication: EPILEPSY
     Route: 048
  2. METFORMIN [Suspect]
     Indication: DIABETES MELLITUS
     Route: 048
  3. SIMVASTATIN [Suspect]
     Indication: HYPERCHOLESTEROLAEMIA
     Route: 048
  4. AMISULPRIDE [Suspect]
     Indication: SCHIZOPHRENIA
     Route: 048
  5. CLOZARIL [Suspect]
     Indication: SCHIZOPHRENIA
     Route: 048
     Dates: start: 20041129
  6. CLOZARIL [Suspect]
     Dosage: 325MG PER DAY
     Route: 048

REACTIONS (3)
  - Schizophrenia [Recovering/Resolving]
  - Antipsychotic drug level decreased [Unknown]
  - Aggression [Unknown]
